FAERS Safety Report 4689871-1 (Version None)
Quarter: 2005Q2

REPORT INFORMATION
  Report Type: 
  Country: None (occurrence: None)
  Receive Date: 20050613
  Receipt Date: 20050613
  Transmission Date: 20051028
  Serious: No
  Sender: FDA-Public Use
  Company Number: None

PATIENT
  Age: 26 Year
  Sex: Female
  Weight: 52.1637 kg

DRUGS (1)
  1. STRATTERA [Suspect]
     Indication: ATTENTION DEFICIT/HYPERACTIVITY DISORDER
     Dosage: 25 MG    1 TIME PER DAY   ORAL
     Route: 048
     Dates: start: 20050520, end: 20050527

REACTIONS (9)
  - BLISTER [None]
  - BURNS SECOND DEGREE [None]
  - BURNS THIRD DEGREE [None]
  - DRUG HYPERSENSITIVITY [None]
  - ERYTHEMA [None]
  - HYPERSENSITIVITY [None]
  - PHOTOSENSITIVITY REACTION [None]
  - RASH MACULAR [None]
  - SUNBURN [None]
